FAERS Safety Report 24092254 (Version 1)
Quarter: 2024Q3

REPORT INFORMATION
  Report Type: Spontaneous
  Country: US (occurrence: None)
  Receive Date: 20240715
  Receipt Date: 20240715
  Transmission Date: 20241016
  Serious: Yes (Hospitalization)
  Sender: Public
  Company Number: None

PATIENT
  Age: 69 Year
  Sex: Female

DRUGS (11)
  1. LENALIDOMIDE [Suspect]
     Active Substance: LENALIDOMIDE
     Indication: Plasma cell myeloma
     Dosage: OTHER FREQUENCY : 14D ON, 7D OFF 21D CYCLE;?
     Route: 048
     Dates: start: 20240628
  2. AMLODIPINE [Concomitant]
     Active Substance: AMLODIPINE BESYLATE
  3. ASPIRIN LOW EC [Concomitant]
  4. CALCIUM [Concomitant]
     Active Substance: CALCIUM
  5. CHLORTHALIDONE [Concomitant]
     Active Substance: CHLORTHALIDONE
  6. COZAAR [Concomitant]
     Active Substance: LOSARTAN POTASSIUM
  7. EZETIMIBE [Concomitant]
     Active Substance: EZETIMIBE
  8. ACETAMINOPHEN\HYDROCODONE [Concomitant]
     Active Substance: ACETAMINOPHEN\HYDROCODONE
  9. MAGNESIUM [Concomitant]
     Active Substance: MAGNESIUM
  10. METHOCARBAMOL [Concomitant]
     Active Substance: METHOCARBAMOL
  11. METOPROLOL TARTRATE [Concomitant]
     Active Substance: METOPROLOL TARTRATE

REACTIONS (3)
  - Aspiration [None]
  - Vomiting [None]
  - Pneumonia [None]

NARRATIVE: CASE EVENT DATE: 20240710
